FAERS Safety Report 19622743 (Version 1)
Quarter: 2021Q3

REPORT INFORMATION
  Report Type: Spontaneous
  Country: US (occurrence: US)
  Receive Date: 20210728
  Receipt Date: 20210728
  Transmission Date: 20211014
  Serious: No
  Sender: FDA-Public Use
  Company Number: US-ACCORD-224470

PATIENT
  Sex: Female
  Weight: 52.62 kg

DRUGS (5)
  1. DIAZEPAM. [Concomitant]
     Active Substance: DIAZEPAM
     Route: 048
  2. ESTRADIOL. [Concomitant]
     Active Substance: ESTRADIOL
     Dosage: ONCE A DAY
     Route: 048
  3. AMITRIPTYLINE ACCORD [Suspect]
     Active Substance: AMITRIPTYLINE
     Indication: CYSTITIS INTERSTITIAL
     Dosage: ONCE A DAY
     Route: 048
     Dates: start: 20210421
  4. NALTREXONE [Concomitant]
     Active Substance: NALTREXONE
     Dosage: ONCE A DAY
     Route: 048
  5. PROGESTERONE. [Concomitant]
     Active Substance: PROGESTERONE
     Dosage: ONCE DAY
     Route: 048

REACTIONS (1)
  - Paraesthesia [Not Recovered/Not Resolved]
